FAERS Safety Report 10177073 (Version 1)
Quarter: 2014Q2

REPORT INFORMATION
  Report Type: Spontaneous
  Country: US (occurrence: None)
  Receive Date: 20140515
  Receipt Date: 20140515
  Transmission Date: 20141212
  Serious: No
  Sender: FDA-Public Use
  Company Number: None

PATIENT
  Age: 62 Year
  Sex: Male
  Weight: 108.2 kg

DRUGS (1)
  1. ALFA2 INTERFERON 2B (INTRON-A) 1342 MG [Suspect]
     Dosage: 45 IU
     Dates: end: 20120815

REACTIONS (1)
  - Blood creatine phosphokinase increased [None]
